FAERS Safety Report 7112661-7 (Version None)
Quarter: 2010Q4

REPORT INFORMATION
  Report Type: 
  Country: None (occurrence: None)
  Receive Date: 20101119
  Receipt Date: 20101110
  Transmission Date: 20110411
  Serious: Yes (Other)
  Sender: FDA-Public Use
  Company Number: GB-ASTRAZENECA-2010SE43234

PATIENT
  Sex: Male

DRUGS (5)
  1. ZOLADEX [Suspect]
     Indication: PROSTATE CANCER
     Route: 058
  2. SILDINAFIL [Concomitant]
     Indication: ERECTILE DYSFUNCTION
     Dosage: AS NEEDED
     Route: 048
  3. DICLOFENAC SODIUM [Concomitant]
     Dosage: 50, AS NEEDED/ THREE TIMES A DAY
     Route: 048
  4. SIMVASTATIN [Concomitant]
     Indication: HYPERCHOLESTEROLAEMIA
     Dosage: 40, ONE A NIGHT
     Route: 048
  5. CO CODAMOL [Concomitant]
     Dosage: 30/500, AS NEEDED/ FOUR TIMES A DAY
     Route: 048

REACTIONS (1)
  - EXPIRED DRUG ADMINISTERED [None]
